FAERS Safety Report 7263029-4 (Version None)
Quarter: 2011Q1

REPORT INFORMATION
  Report Type: 
  Country: None (occurrence: None)
  Receive Date: 20110130
  Receipt Date: 20100920
  Transmission Date: 20110831
  Serious: No
  Sender: FDA-Public Use
  Company Number: US-ABBOTT-10P-163-0672834-00

PATIENT
  Sex: Female
  Weight: 44.492 kg

DRUGS (4)
  1. HUMIRA [Suspect]
     Indication: RHEUMATOID ARTHRITIS
     Dates: start: 19980101, end: 20050101
  2. HUMIRA [Suspect]
     Dates: start: 20050101
  3. PANADOL [Concomitant]
     Indication: PAIN
  4. MOTRIN [Concomitant]
     Indication: PAIN

REACTIONS (10)
  - TONGUE DISORDER [None]
  - GLOSSODYNIA [None]
  - DRY MOUTH [None]
  - DECREASED APPETITE [None]
  - CHAPPED LIPS [None]
  - INFLUENZA LIKE ILLNESS [None]
  - CHILLS [None]
  - PAIN [None]
  - ARTHRALGIA [None]
  - LIP PAIN [None]
